FAERS Safety Report 7485831-6 (Version None)
Quarter: 2011Q2

REPORT INFORMATION
  Report Type: 
  Country: None (occurrence: None)
  Receive Date: 20110517
  Receipt Date: 20110511
  Transmission Date: 20111010
  Serious: Yes (Congenital Anomaly, Other)
  Sender: FDA-Public Use
  Company Number: CH-PFIZER INC-2010113073

PATIENT
  Sex: Male
  Weight: 3.61 kg

DRUGS (7)
  1. SEROQUEL [Suspect]
     Dosage: 200 MG, 2X/DAY
     Route: 064
     Dates: start: 20100623
  2. ALCOHOL [Suspect]
     Dosage: UNK
     Route: 064
     Dates: end: 20100616
  3. XANAX [Suspect]
     Dosage: 4 MG, 1X/DAY
     Route: 064
  4. CANNABIS [Suspect]
     Dosage: UNK
     Route: 064
     Dates: end: 20100616
  5. CITALOPRAM HYDROBROMIDE [Suspect]
     Dosage: 40 MG, 1X/DAY
     Route: 064
  6. MOTILIUM [Suspect]
     Dosage: UNK, AS NEEDED
     Route: 064
  7. COCAINE [Suspect]
     Dosage: UNK
     Route: 064
     Dates: end: 20100616

REACTIONS (6)
  - DRUG SCREEN POSITIVE [None]
  - POLYDACTYLY [None]
  - GASTROOESOPHAGEAL REFLUX DISEASE [None]
  - DRUG WITHDRAWAL SYNDROME NEONATAL [None]
  - DRUG EXPOSURE DURING PREGNANCY [None]
  - ORAL CANDIDIASIS [None]
